FAERS Safety Report 6676977-0 (Version None)
Quarter: 2010Q2

REPORT INFORMATION
  Report Type: 
  Country: None (occurrence: None)
  Receive Date: 20100412
  Receipt Date: 20100329
  Transmission Date: 20101027
  Serious: Yes (Hospitalization, Other)
  Sender: FDA-Public Use
  Company Number: US-ELI_LILLY_AND_COMPANY-US200911001204

PATIENT
  Sex: Female

DRUGS (8)
  1. FORTEO [Suspect]
     Dates: start: 20090701
  2. PLAVIX [Concomitant]
  3. CRESTOR [Concomitant]
  4. IRON [Concomitant]
  5. STOOL SOFTENER [Concomitant]
  6. VITAMINS NOS [Concomitant]
  7. FISH OIL [Concomitant]
  8. PRILOSEC [Concomitant]

REACTIONS (1)
  - CAROTID ARTERY OCCLUSION [None]
